FAERS Safety Report 19447614 (Version 1)
Quarter: 2021Q2

REPORT INFORMATION
  Report Type: Spontaneous
  Country: US (occurrence: US)
  Receive Date: 20210621
  Receipt Date: 20210621
  Transmission Date: 20210717
  Serious: No
  Sender: FDA-Public Use
  Company Number: None

PATIENT
  Age: 60 Year
  Sex: Male

DRUGS (1)
  1. XELODA [Suspect]
     Active Substance: CAPECITABINE
     Indication: COLON CANCER
     Dosage: ?          OTHER DOSE:4 TABLETS;?
     Route: 048
     Dates: start: 202105, end: 202106

REACTIONS (3)
  - Therapy cessation [None]
  - Hospitalisation [None]
  - Drug intolerance [None]

NARRATIVE: CASE EVENT DATE: 20210621
